FAERS Safety Report 17610761 (Version 1)
Quarter: 2020Q1

REPORT INFORMATION
  Report Type: Spontaneous
  Country: US (occurrence: US)
  Receive Date: 20200330
  Receipt Date: 20200330
  Transmission Date: 20200409
  Serious: Yes (Hospitalization)
  Sender: FDA-Public Use
  Company Number: None

PATIENT
  Age: 64 Year
  Sex: Male

DRUGS (2)
  1. CEFUROXIME (CEFUROXIME AXETIL 250MG TAB) [Suspect]
     Active Substance: CEFUROXIME AXETIL
     Indication: UPPER RESPIRATORY TRACT INFECTION
     Route: 048
     Dates: start: 20200113
  2. LISINOPRIL (LISINOPRIL 10MG TAB) [Suspect]
     Active Substance: LISINOPRIL
     Indication: HYPERTENSION
     Route: 048
     Dates: start: 20180424, end: 20200115

REACTIONS (1)
  - Angioedema [None]

NARRATIVE: CASE EVENT DATE: 20200115
